FAERS Safety Report 17737139 (Version 1)
Quarter: 2020Q2

REPORT INFORMATION
  Report Type: Spontaneous
  Country: ES (occurrence: ES)
  Receive Date: 20200502
  Receipt Date: 20200502
  Transmission Date: 20200714
  Serious: Yes (Other)
  Sender: FDA-Public Use
  Company Number: ES-TEVA-2020-ES-1229354

PATIENT
  Age: 79 Year
  Sex: Male

DRUGS (6)
  1. DICLOFENACO (745A) [Suspect]
     Active Substance: DICLOFENAC
     Indication: SELF-MEDICATION
     Route: 048
     Dates: start: 20200317, end: 20200317
  2. ALOPURINOL 300 MG COMPRIMIDO [Concomitant]
  3. ATENOLOL (356A) [Concomitant]
     Active Substance: ATENOLOL
  4. UNIKET 20 MG COMPRIMIDOS [Concomitant]
  5. ADIRO 100 MG COMPRIMIDOS GASTRORRESISTENTES EFG [Concomitant]
     Active Substance: ASPIRIN
  6. SIMVASTATINA (1023A) [Concomitant]
     Active Substance: SIMVASTATIN

REACTIONS (2)
  - Rash [Recovering/Resolving]
  - Respiratory distress [Recovering/Resolving]

NARRATIVE: CASE EVENT DATE: 20200317
